FAERS Safety Report 8927861 (Version 2)
Quarter: 2012Q4

REPORT INFORMATION
  Report Type: Report from Study
  Country: CA (occurrence: CA)
  Receive Date: 20121127
  Receipt Date: 20121205
  Transmission Date: 20130627
  Serious: Yes (Other)
  Sender: FDA-Public Use
  Company Number: CA-ROCHE-1160221

PATIENT
  Age: 56 Year
  Sex: Female
  Weight: 77.18 kg

DRUGS (6)
  1. RITUXIMAB [Suspect]
     Indication: RHEUMATOID ARTHRITIS
     Route: 042
     Dates: start: 20120419
  2. PREDNISONE [Concomitant]
  3. HYDROMORPHONE [Concomitant]
     Route: 065
  4. TYLENOL [Concomitant]
     Route: 048
     Dates: start: 20120419
  5. BENADRYL [Concomitant]
     Route: 048
     Dates: start: 20120419
  6. SOLU-MEDROL [Concomitant]
     Route: 042
     Dates: start: 20120419

REACTIONS (2)
  - Rectal haemorrhage [Not Recovered/Not Resolved]
  - Abdominal pain [Not Recovered/Not Resolved]
